FAERS Safety Report 10234028 (Version 2)
Quarter: 2014Q3

REPORT INFORMATION
  Report Type: Spontaneous
  Country: US (occurrence: US)
  Receive Date: 20140612
  Receipt Date: 20140708
  Transmission Date: 20150326
  Serious: Yes (Hospitalization)
  Sender: FDA-Public Use
  Company Number: US-TEVA-486949USA

PATIENT
  Sex: Female

DRUGS (13)
  1. NORA-BE [Concomitant]
  2. RISPERIDONE. [Concomitant]
     Active Substance: RISPERIDONE
     Indication: SCHIZOPHRENIA
  3. BUPROPION [Concomitant]
     Active Substance: BUPROPION
     Indication: SCHIZOPHRENIA
  4. PRILOSEC [Concomitant]
     Active Substance: OMEPRAZOLE MAGNESIUM
  5. ALBUTEROL. [Concomitant]
     Active Substance: ALBUTEROL
  6. VALIUM [Suspect]
     Active Substance: DIAZEPAM
  7. CLOZAPINE. [Suspect]
     Active Substance: CLOZAPINE
     Indication: SCHIZOPHRENIA
     Dosage: 150 MILLIGRAM DAILY;
     Dates: end: 2014
  8. BUPROPION [Concomitant]
     Active Substance: BUPROPION
     Indication: DEPRESSION
  9. SERTRALINE [Concomitant]
     Active Substance: SERTRALINE HYDROCHLORIDE
     Indication: SCHIZOPHRENIA
  10. SERTRALINE [Concomitant]
     Active Substance: SERTRALINE HYDROCHLORIDE
     Indication: DEPRESSION
  11. CLOZAPINE. [Suspect]
     Active Substance: CLOZAPINE
     Indication: DEPRESSION
  12. RISPERIDONE. [Concomitant]
     Active Substance: RISPERIDONE
     Indication: DEPRESSION
  13. COUMADIN [Concomitant]
     Active Substance: WARFARIN SODIUM

REACTIONS (6)
  - Endotracheal intubation [Recovered/Resolved]
  - White blood cell count increased [Recovered/Resolved]
  - Suicide attempt [Recovered/Resolved]
  - Confusional state [Not Recovered/Not Resolved]
  - Mental disorder [Not Recovered/Not Resolved]
  - Overdose [Recovered/Resolved]

NARRATIVE: CASE EVENT DATE: 20140601
